FAERS Safety Report 6742764-8 (Version None)
Quarter: 2010Q2

REPORT INFORMATION
  Report Type: 
  Country: None (occurrence: None)
  Receive Date: 20100526
  Receipt Date: 20100505
  Transmission Date: 20101027
  Serious: No
  Sender: FDA-Public Use
  Company Number: US-ABBOTT-10P-163-0643476-00

PATIENT
  Weight: 86.26 kg

DRUGS (16)
  1. ZEMPLAR [Suspect]
     Indication: RENAL FAILURE
     Route: 048
  2. RANEXA [Suspect]
     Indication: CARDIAC DISORDER
     Dosage: 2-500MG TABLETS EVERY TWO DAYS
     Dates: start: 20100401
  3. NEURONTIN [Concomitant]
     Indication: DRUG USE FOR UNKNOWN INDICATION
     Dosage: DAILY
  4. LOPID [Concomitant]
     Indication: DRUG USE FOR UNKNOWN INDICATION
  5. COLACE [Concomitant]
     Indication: CONSTIPATION PROPHYLAXIS
     Dosage: 2-100MG TABLETS DAILY
     Dates: start: 20070101
  6. ZYLOPRIM [Concomitant]
     Indication: DRUG USE FOR UNKNOWN INDICATION
  7. ASPIRIN [Concomitant]
     Indication: DRUG USE FOR UNKNOWN INDICATION
     Dates: start: 20070101
  8. PROCARDIA [Concomitant]
     Indication: CARDIAC DISORDER
     Dates: start: 20070101
  9. PEPCID [Concomitant]
     Indication: PROPHYLAXIS AGAINST GASTROINTESTINAL ULCER
  10. IMDUR [Concomitant]
     Indication: DRUG USE FOR UNKNOWN INDICATION
     Dosage: 2-60MG TABLETS DAILY
     Dates: start: 20070101
  11. PLAVIX [Concomitant]
     Indication: DRUG USE FOR UNKNOWN INDICATION
     Dosage: DAILY
  12. ALDACTONE [Concomitant]
     Indication: DRUG USE FOR UNKNOWN INDICATION
     Dates: start: 20070101
  13. LOPRESSOR [Concomitant]
     Indication: HYPERTENSION
     Dosage: 2-50MG TABLETS DAILY
     Dates: start: 20070101
  14. LASIX [Concomitant]
     Indication: DRUG USE FOR UNKNOWN INDICATION
     Dates: start: 20070101
  15. NITROSTAT [Concomitant]
     Indication: ANGINA PECTORIS
     Dosage: AS NEEDED
     Route: 060
     Dates: start: 20070101
  16. MIRALAX [Concomitant]
     Indication: CONSTIPATION PROPHYLAXIS
     Dosage: DAILY

REACTIONS (1)
  - CONSTIPATION [None]
